FAERS Safety Report 4938287-9 (Version None)
Quarter: 2006Q1

REPORT INFORMATION
  Report Type: 
  Country: None (occurrence: None)
  Receive Date: 20060309
  Receipt Date: 20040924
  Transmission Date: 20060701
  Serious: Yes (Hospitalization, Disabling)
  Sender: FDA-Public Use
  Company Number: US-GLAXOSMITHKLINE-A0527179A

PATIENT
  Age: 49 Year
  Sex: Male
  Weight: 84.1 kg

DRUGS (3)
  1. LEXIVA [Suspect]
     Indication: HIV INFECTION
     Dosage: 700MG TWICE PER DAY
     Route: 048
     Dates: start: 20040903, end: 20041012
  2. ABACAVIR SULFATE LAMIVUDINE AND ZIDOVUDINE [Suspect]
     Indication: HIV INFECTION
     Dosage: 1TAB PER DAY
     Route: 048
     Dates: start: 20040903, end: 20041012
  3. RITONAVIR [Suspect]
     Indication: HIV INFECTION
     Dosage: 100MG TWICE PER DAY
     Route: 048
     Dates: start: 20040903, end: 20041012

REACTIONS (7)
  - DEMYELINATING POLYNEUROPATHY [None]
  - GUILLAIN-BARRE SYNDROME [None]
  - HYPOREFLEXIA [None]
  - ILL-DEFINED DISORDER [None]
  - NEUROPATHY [None]
  - NEUROPATHY PERIPHERAL [None]
  - SENSORY LOSS [None]
